FAERS Safety Report 9204592 (Version 1)
Quarter: 2013Q1

REPORT INFORMATION
  Report Type: Spontaneous
  Country: US (occurrence: None)
  Receive Date: 20120709
  Receipt Date: 20120709
  Transmission Date: 20140127
  Serious: No
  Sender: FDA-Public Use
  Company Number: 2012HGS-003488

PATIENT
  Age: 50 Year
  Sex: Female
  Weight: 74.39 kg

DRUGS (8)
  1. BENLYSTA [Suspect]
     Indication: SYSTEMIC LUPUS ERYTHEMATOSUS
     Dosage: 1 IN 21 D
     Route: 041
     Dates: start: 20120314
  2. PREDNISONE (PREDNISONE) (PREDNISONE) [Concomitant]
  3. METHADONE (METHADONE) (METHADONE) [Concomitant]
  4. PERCOCET (TYLOX / 00446701/ ) (PARACETAMOL, OXYCODONE HYDROCHLORIDE, OXYCODONE TEREPHTHALATE) [Concomitant]
  5. PRISTIQ (DESVENLAFAXINE SUCCINATE) (DESVENLAFAXINE SUCCINATE) [Concomitant]
  6. NABBUMETONE (NABUMETONE) (NABUMETONE) [Concomitant]
  7. VITAMIN D (ERGOCALCIFEROL) (ERGOCALCIFEROL) [Concomitant]
  8. LUNESTA (ESZOPICLONE) (ESZOPICLONE) [Concomitant]

REACTIONS (4)
  - Chills [None]
  - Gastrointestinal viral infection [None]
  - Abdominal pain upper [None]
  - Diarrhoea [None]
